FAERS Safety Report 7571988-5 (Version None)
Quarter: 2011Q2

REPORT INFORMATION
  Report Type: 
  Country: None (occurrence: None)
  Receive Date: 20110624
  Receipt Date: 20110623
  Transmission Date: 20111010
  Serious: Yes (Other)
  Sender: FDA-Public Use
  Company Number: CA-ABBOTT-10P-028-0693270-00

PATIENT
  Sex: Female
  Weight: 56.75 kg

DRUGS (6)
  1. TAMOXIFEN CITRATE [Concomitant]
     Indication: BREAST CANCER
     Dosage: DAILY
     Route: 048
     Dates: start: 20101220
  2. ZOLADEX [Concomitant]
     Indication: BREAST CANCER
     Dosage: MONTHLY
     Route: 058
     Dates: start: 20101220
  3. HUMIRA [Suspect]
     Indication: FISTULA
  4. HUMIRA [Suspect]
     Indication: CROHN'S DISEASE
     Route: 058
     Dates: start: 20101014
  5. PREDNISONE [Concomitant]
     Indication: CROHN'S DISEASE
     Route: 048
     Dates: start: 20101226
  6. IRON INFUSIONS [Concomitant]
     Indication: BLOOD IRON DECREASED
     Route: 042
     Dates: start: 20040101

REACTIONS (6)
  - DIARRHOEA [None]
  - INTESTINAL STENOSIS [None]
  - FATIGUE [None]
  - CONSTIPATION [None]
  - DYSPEPSIA [None]
  - INFLAMMATION [None]
